FAERS Safety Report 23505271 (Version 1)
Quarter: 2024Q1

REPORT INFORMATION
  Report Type: Spontaneous
  Country: IN (occurrence: IN)
  Receive Date: 20240209
  Receipt Date: 20240209
  Transmission Date: 20240410
  Serious: Yes (Hospitalization)
  Sender: FDA-Public Use
  Company Number: IN-IPCA LABORATORIES LIMITED-IPC-2024-IN-000280

PATIENT

DRUGS (2)
  1. WARFARIN [Suspect]
     Active Substance: WARFARIN
     Indication: Cerebral venous sinus thrombosis
     Dosage: 5 MILLIGRAM, QD
     Route: 065
  2. ERYTHROPOIETIN [Concomitant]
     Active Substance: ERYTHROPOIETIN
     Indication: Cerebral venous sinus thrombosis
     Dosage: 100 MILLIGRAM, QD
     Route: 065

REACTIONS (9)
  - Contusion [Unknown]
  - Haematoma [Unknown]
  - Asthenia [Unknown]
  - Muscle spasms [Unknown]
  - Abdominal pain upper [Unknown]
  - Tenderness [Unknown]
  - Oedema [Unknown]
  - Oedema peripheral [Unknown]
  - Overdose [Unknown]
